FAERS Safety Report 8389258-4 (Version None)
Quarter: 2012Q2

REPORT INFORMATION
  Report Type: 
  Country: None (occurrence: None)
  Receive Date: 20120528
  Receipt Date: 20120524
  Transmission Date: 20120825
  Serious: Yes (Death)
  Sender: FDA-Public Use
  Company Number: PHHY2012MX001129

PATIENT
  Sex: Male

DRUGS (3)
  1. EXJADE [Suspect]
     Indication: MYELODYSPLASTIC SYNDROME
  2. EXJADE [Suspect]
     Indication: IRON OVERLOAD
     Dosage: 2 DF, DAILY
     Route: 048
     Dates: start: 20110120
  3. VITAMINS NOS [Concomitant]
     Indication: DECREASED APPETITE
     Dosage: 1 DF, PER DAY

REACTIONS (3)
  - NEOPLASM MALIGNANT [None]
  - INFARCTION [None]
  - NEOPLASM PROGRESSION [None]
